FAERS Safety Report 8257991-0 (Version None)
Quarter: 2012Q2

REPORT INFORMATION
  Report Type: 
  Country: None (occurrence: None)
  Receive Date: 20120404
  Receipt Date: 20120327
  Transmission Date: 20120825
  Serious: Yes (Other)
  Sender: FDA-Public Use
  Company Number: JP-JNJFOC-20120307649

PATIENT
  Age: 67 Year
  Sex: Female

DRUGS (9)
  1. OPALMON [Concomitant]
     Dosage: 1 PER 1 DAY
     Route: 048
     Dates: start: 20120221
  2. MUCOSTA [Concomitant]
     Dosage: 300MG 1 PER 1 DAY
     Route: 048
     Dates: start: 20120321
  3. PROCHLORPERAZINE [Concomitant]
     Dosage: 20MG 1 PER 1 DAY
     Route: 048
     Dates: start: 20120221
  4. LOXONIN [Concomitant]
     Dosage: 180MG 1 PER 1 DAY
     Route: 048
     Dates: start: 20120321
  5. TRAMADOL HYDROCHLORIDE AND ACETAMINOPHEN [Suspect]
     Indication: PAIN
     Dosage: 1 DOSE PER DAY
     Route: 048
     Dates: start: 20120321
  6. TPN [Concomitant]
     Route: 048
     Dates: start: 20120307
  7. TRAMADOL HYDROCHLORIDE AND ACETAMINOPHEN [Suspect]
     Dosage: 2 DOSES PER DAY
     Route: 048
     Dates: start: 20120307, end: 20120320
  8. TRAMADOL HYDROCHLORIDE AND ACETAMINOPHEN [Suspect]
     Dosage: 4 DOSES PER DAY
     Route: 048
     Dates: start: 20120221, end: 20120306
  9. KENALOG [Concomitant]
     Route: 049
     Dates: start: 20120307

REACTIONS (3)
  - INCORRECT DOSE ADMINISTERED [None]
  - STOMATITIS [None]
  - SOMNOLENCE [None]
